FAERS Safety Report 25825828 (Version 4)
Quarter: 2025Q4

REPORT INFORMATION
  Report Type: Spontaneous
  Country: JP (occurrence: JP)
  Receive Date: 20250919
  Receipt Date: 20251020
  Transmission Date: 20260119
  Serious: Yes (Other)
  Sender: UCB
  Company Number: JP-UCBJ-CD202511930UCBPHAPROD

PATIENT
  Age: 34 Year

DRUGS (8)
  1. BRIVIACT [Suspect]
     Active Substance: BRIVARACETAM
     Indication: Parietal lobe epilepsy
     Dosage: 50 MILLIGRAM, 2X/DAY (BID)
  2. BRIVIACT [Suspect]
     Active Substance: BRIVARACETAM
     Dosage: 50 MILLIGRAM, 2X/DAY (BID)
  3. TOPIRAMATE [Suspect]
     Active Substance: TOPIRAMATE
     Indication: Parietal lobe epilepsy
     Dosage: 50 MILLIGRAM, 3X/DAY (TID)
  4. TOPIRAMATE [Suspect]
     Active Substance: TOPIRAMATE
     Dosage: 50 MILLIGRAM, 2X/DAY (BID)
  5. TOPIRAMATE [Suspect]
     Active Substance: TOPIRAMATE
     Dosage: 50 MILLIGRAM, 3X/DAY (TID)
  6. VIMPAT [Concomitant]
     Active Substance: LACOSAMIDE
     Indication: Parietal lobe epilepsy
     Dosage: 100 MILLIGRAM, 3X/DAY (TID)
  7. PHENYTOIN SODIUM [Concomitant]
     Active Substance: PHENYTOIN SODIUM
     Indication: Parietal lobe epilepsy
     Dosage: 100 MILLIGRAM, 2X/DAY (BID)
  8. MYSTAN [Concomitant]
     Active Substance: CLOBAZAM
     Indication: Parietal lobe epilepsy
     Dosage: 5 MILLIGRAM, 3X/DAY (TID)

REACTIONS (1)
  - Epilepsy [Recovered/Resolved]
